FAERS Safety Report 4365175-1 (Version None)
Quarter: 2004Q2

REPORT INFORMATION
  Report Type: 
  Country: None (occurrence: None)
  Receive Date: 20040521
  Receipt Date: 20040507
  Transmission Date: 20050107
  Serious: Yes (Death)
  Sender: FDA-Public Use
  Company Number: F01200401036

PATIENT
  Age: 75 Year
  Sex: Male

DRUGS (2)
  1. OXALIPLATIN - SOLUTION - 50 MG/M2 [Suspect]
     Indication: RECTAL CANCER
     Dosage: 50 MG/M2 1/WEEK
     Route: 042
     Dates: start: 20030601, end: 20030601
  2. CAPECITABINE - TABLET - 825 MG/M2 [Suspect]
     Dosage: 825 MG/M2 (TWICE A DAY) FOR 5 DAYS EACH WEEK FOR 5 WEEKS
     Route: 048
     Dates: start: 20030201, end: 20030601

REACTIONS (6)
  - HAEMODIALYSIS [None]
  - PERINEAL ABSCESS [None]
  - PERITONITIS [None]
  - RENAL FAILURE ACUTE [None]
  - SEPTIC SHOCK [None]
  - URETHRAL INJURY [None]
